FAERS Safety Report 6808091-5 (Version None)
Quarter: 2010Q2

REPORT INFORMATION
  Report Type: 
  Country: None (occurrence: None)
  Receive Date: 20100629
  Receipt Date: 20090428
  Transmission Date: 20101027
  Serious: No
  Sender: FDA-Public Use
  Company Number: US-PFIZER INC-2009165368

PATIENT
  Sex: Male

DRUGS (3)
  1. VIAGRA [Suspect]
     Indication: ERECTILE DYSFUNCTION
     Dosage: UNK
  2. LEVITRA [Suspect]
     Indication: ERECTILE DYSFUNCTION
     Dosage: UNK
  3. CIALIS [Suspect]
     Indication: ERECTILE DYSFUNCTION
     Dosage: UNK

REACTIONS (7)
  - CHROMATOPSIA [None]
  - HYPERSENSITIVITY [None]
  - LACRIMATION INCREASED [None]
  - NASAL CONGESTION [None]
  - NASAL DISCOMFORT [None]
  - NASAL OEDEMA [None]
  - RHINORRHOEA [None]
